FAERS Safety Report 13767448 (Version 1)
Quarter: 2017Q3

REPORT INFORMATION
  Report Type: Spontaneous
  Country: RU (occurrence: RU)
  Receive Date: 20170719
  Receipt Date: 20170719
  Transmission Date: 20171127
  Serious: Yes (Hospitalization)
  Sender: FDA-Public Use
  Company Number: RU-ASTRAZENECA-2017SE73056

PATIENT
  Age: 2 Year
  Sex: Male

DRUGS (3)
  1. PULMICORT TURBUHALER [Suspect]
     Active Substance: BUDESONIDE
     Indication: BRONCHIAL OBSTRUCTION
     Dosage: 250-500 MCG 3 TIMES PER DAY
     Route: 055
     Dates: start: 201706
  2. PREDNISOLONE. [Concomitant]
     Active Substance: PREDNISOLONE
     Dosage: AS A SINGLE DOSE
  3. BERODUAL [Concomitant]
     Active Substance: FENOTEROL HYDROBROMIDE\IPRATROPIUM BROMIDE
     Dosage: AS A SINGLE DOSE

REACTIONS (3)
  - Bronchial obstruction [Unknown]
  - Product use in unapproved indication [Unknown]
  - Off label use [Unknown]
